FAERS Safety Report 6229686-6 (Version None)
Quarter: 2009Q2

REPORT INFORMATION
  Report Type: 
  Country: None (occurrence: None)
  Receive Date: 20090609
  Receipt Date: 20090129
  Transmission Date: 20091009
  Serious: Yes (Disabling, Other)
  Sender: FDA-Public Use
  Company Number: 000291

PATIENT
  Sex: Male
  Weight: 106.8 kg

DRUGS (5)
  1. ROTIGOTINE [Suspect]
     Indication: RESTLESS LEGS SYNDROME
     Dosage: 2 MG QD TRANDERMAL
     Route: 062
     Dates: start: 20080219, end: 20080601
  2. OXYCONTIN [Concomitant]
  3. NEURONTIN [Concomitant]
  4. LYRICA [Concomitant]
  5. XANAX [Concomitant]

REACTIONS (4)
  - ANGER [None]
  - HYPERHIDROSIS [None]
  - OFF LABEL USE [None]
  - PAIN IN EXTREMITY [None]
